FAERS Safety Report 23945697 (Version 1)
Quarter: 2024Q2

REPORT INFORMATION
  Report Type: Spontaneous
  Country: US (occurrence: None)
  Receive Date: 20240605
  Receipt Date: 20240605
  Transmission Date: 20240715
  Serious: No
  Sender: FDA-Public Use
  Company Number: None

PATIENT
  Sex: 0

DRUGS (1)
  1. DULOXETINE [Suspect]
     Active Substance: DULOXETINE

REACTIONS (7)
  - Exophthalmos [None]
  - Pain [None]
  - Pain in extremity [None]
  - Paraesthesia [None]
  - Paraesthesia [None]
  - Paraesthesia [None]
  - Hypoaesthesia [None]
